FAERS Safety Report 15500609 (Version 1)
Quarter: 2018Q4

REPORT INFORMATION
  Report Type: Spontaneous
  Country: AU (occurrence: AU)
  Receive Date: 20181015
  Receipt Date: 20181015
  Transmission Date: 20190205
  Serious: Yes (Life-Threatening)
  Sender: FDA-Public Use
  Company Number: AU-ASTRAZENECA-2018SF20687

PATIENT
  Age: 24849 Day
  Sex: Female
  Weight: 75 kg

DRUGS (5)
  1. CELEBREX [Concomitant]
     Active Substance: CELECOXIB
  2. SYMBICORT [Suspect]
     Active Substance: BUDESONIDE\FORMOTEROL FUMARATE DIHYDRATE
     Indication: ASTHMA
     Dosage: 200/6MCG, 1 PUFF TWO TIMES A DAY
     Route: 048
     Dates: start: 20180914, end: 20180920
  3. SYMBICORT [Suspect]
     Active Substance: BUDESONIDE\FORMOTEROL FUMARATE DIHYDRATE
     Indication: ASTHMA
     Route: 048
     Dates: start: 20180920
  4. SALPRAZ [Concomitant]
  5. PROLIA [Concomitant]
     Active Substance: DENOSUMAB

REACTIONS (5)
  - Circumstance or information capable of leading to medication error [Unknown]
  - Device malfunction [Unknown]
  - Overdose [Unknown]
  - Asthma [Recovered/Resolved]
  - Product dose omission [Unknown]

NARRATIVE: CASE EVENT DATE: 20180914
